FAERS Safety Report 10433319 (Version 1)
Quarter: 2014Q3

REPORT INFORMATION
  Report Type: Spontaneous
  Country: US (occurrence: US)
  Receive Date: 20140905
  Receipt Date: 20140905
  Transmission Date: 20150326
  Serious: No
  Sender: FDA-Public Use
  Company Number: US-ELI_LILLY_AND_COMPANY-US201409000477

PATIENT
  Age: 78 Year
  Sex: Female

DRUGS (1)
  1. FORTEO [Suspect]
     Active Substance: TERIPARATIDE
     Indication: OSTEOPOROSIS
     Dosage: UNK
     Route: 065
     Dates: start: 201403, end: 20140713

REACTIONS (8)
  - Onychalgia [Unknown]
  - Joint swelling [Unknown]
  - Musculoskeletal stiffness [Unknown]
  - Skin odour abnormal [Unknown]
  - Peripheral swelling [Unknown]
  - Jaw fracture [Unknown]
  - Urine odour abnormal [Unknown]
  - Breast enlargement [Unknown]

NARRATIVE: CASE EVENT DATE: 2014
